FAERS Safety Report 8917085 (Version 1)
Quarter: 2012Q4

REPORT INFORMATION
  Report Type: Report from Study
  Country: GB (occurrence: GB)
  Receive Date: 20121120
  Receipt Date: 20121120
  Transmission Date: 20130627
  Serious: Yes (Other)
  Sender: FDA-Public Use
  Company Number: GB-ROCHE-1156086

PATIENT
  Age: 72 Year
  Sex: Female
  Weight: 78 kg

DRUGS (2)
  1. RITUXIMAB [Suspect]
     Indication: RHEUMATOID ARTHRITIS
     Dosage: Date of last dose prior to SAE: 15 Jun 2011.
     Route: 065
     Dates: start: 20071215
  2. LEFLUNOMIDE [Concomitant]

REACTIONS (1)
  - Malignant melanoma in situ [Unknown]
